FAERS Safety Report 16735987 (Version 4)
Quarter: 2019Q4

REPORT INFORMATION
  Report Type: Spontaneous
  Country: US (occurrence: US)
  Receive Date: 20190823
  Receipt Date: 20191024
  Transmission Date: 20200122
  Serious: No
  Sender: FDA-Public Use
  Company Number: US-PFIZER INC-2019361740

PATIENT
  Age: 67 Year
  Sex: Female
  Weight: 53.52 kg

DRUGS (3)
  1. ELETRIPTAN HBR [Suspect]
     Active Substance: ELETRIPTAN HYDROBROMIDE
     Indication: MIGRAINE WITH AURA
     Dosage: 40 MG, UNK (1-2 TIMES DAILY)
     Dates: start: 201901, end: 201906
  2. ELETRIPTAN HBR [Suspect]
     Active Substance: ELETRIPTAN HYDROBROMIDE
     Indication: HEADACHE
  3. ELETRIPTAN HBR [Suspect]
     Active Substance: ELETRIPTAN HYDROBROMIDE
     Indication: MIGRAINE

REACTIONS (4)
  - Dizziness [Unknown]
  - Balance disorder [Unknown]
  - Drug ineffective [Recovered/Resolved]
  - Thinking abnormal [Unknown]

NARRATIVE: CASE EVENT DATE: 2019
